FAERS Safety Report 8048319-X (Version None)
Quarter: 2011Q4

REPORT INFORMATION
  Report Type: 
  Country: None (occurrence: None)
  Receive Date: 20111209
  Receipt Date: 20110922
  Transmission Date: 20120403
  Serious: No
  Sender: FDA-Public Use
  Company Number: 2011SP045036

PATIENT
  Age: 60 Year
  Sex: Female

DRUGS (7)
  1. ZETIA [Concomitant]
  2. RIBAVIRIN [Suspect]
     Indication: PRODUCT USED FOR UNKNOWN INDICATION
     Dosage: 200 MG
  3. NAPROXEN [Concomitant]
  4. LYRICA [Concomitant]
  5. VICTRELIS [Suspect]
     Indication: HEPATITIS C
     Dosage: ;TID; PO
     Route: 048
     Dates: start: 20110920
  6. FAMOTIDINE [Concomitant]
  7. LEXAPRO [Concomitant]

REACTIONS (2)
  - VOMITING [None]
  - DYSPEPSIA [None]
